FAERS Safety Report 6240122-6 (Version None)
Quarter: 2009Q2

REPORT INFORMATION
  Report Type: 
  Country: None (occurrence: None)
  Receive Date: 20090617
  Receipt Date: 20080226
  Transmission Date: 20091009
  Serious: No
  Sender: FDA-Public Use
  Company Number: 272599

PATIENT
  Age: 68 Year
  Sex: Male

DRUGS (2)
  1. LEVEMIR [Suspect]
     Indication: DIABETES MELLITUS
     Dosage: 120 IU, QD, SUBCUTANEOUS
     Route: 058
     Dates: start: 20071201
  2. NOVOLOG [Suspect]
     Indication: DIABETES MELLITUS
     Dosage: 50-55 IU, BID, SUBCUTANEOUS
     Route: 058

REACTIONS (3)
  - BLOOD GLUCOSE INCREASED [None]
  - INJECTION SITE HAEMATOMA [None]
  - INJECTION SITE NODULE [None]
